FAERS Safety Report 8180694-8 (Version None)
Quarter: 2012Q1

REPORT INFORMATION
  Report Type: 
  Country: None (occurrence: None)
  Receive Date: 20120302
  Receipt Date: 20120223
  Transmission Date: 20120608
  Serious: Yes (Death, Life-Threatening, Hospitalization)
  Sender: FDA-Public Use
  Company Number: AU-JNJFOC-20111002707

PATIENT
  Sex: Male
  Weight: 85 kg

DRUGS (10)
  1. ORDINE [Concomitant]
     Indication: BONE PAIN
     Route: 065
     Dates: start: 20110701, end: 20111001
  2. LIDOCAINE [Concomitant]
     Indication: PENILE PAIN
     Route: 065
     Dates: start: 20111001, end: 20111001
  3. ORDINE [Concomitant]
     Indication: PELVIC PAIN
     Route: 065
     Dates: start: 20110701, end: 20111001
  4. ABIRATERONE ACETATE [Suspect]
     Route: 048
  5. OXYCONTIN [Concomitant]
     Indication: BONE PAIN
     Route: 065
     Dates: start: 20110701
  6. ABIRATERONE ACETATE [Suspect]
     Indication: PROSTATE CANCER METASTATIC
     Route: 048
     Dates: start: 20110923, end: 20111020
  7. PREDNISOLONE [Suspect]
     Indication: PROSTATE CANCER METASTATIC
     Route: 065
     Dates: start: 20110923
  8. FUROSEMIDE [Suspect]
     Indication: OEDEMA PERIPHERAL
     Route: 065
     Dates: start: 20111001, end: 20111001
  9. OXYCONTIN [Concomitant]
     Indication: PELVIC PAIN
     Route: 065
     Dates: start: 20110701
  10. ZOLADEX [Concomitant]
     Indication: HORMONE THERAPY
     Dosage: 10.8 UNSPECIFIED UNITS
     Route: 065
     Dates: start: 20090921

REACTIONS (6)
  - HYPOKALAEMIA [None]
  - ATRIAL FIBRILLATION [None]
  - ELECTROLYTE IMBALANCE [None]
  - ANAEMIA [None]
  - OEDEMA PERIPHERAL [None]
  - HAEMATURIA [None]
